FAERS Safety Report 7153323-X (Version None)
Quarter: 2010Q4

REPORT INFORMATION
  Report Type: 
  Country: None (occurrence: None)
  Receive Date: 20101209
  Receipt Date: 20101209
  Transmission Date: 20110411
  Serious: Yes (Other)
  Sender: FDA-Public Use
  Company Number: None

PATIENT
  Age: 51 Year
  Sex: Male
  Weight: 81.1939 kg

DRUGS (1)
  1. MARAVIROC 150MG VIIV [Suspect]
     Indication: HIV INFECTION
     Dosage: 150 BID PO
     Route: 048
     Dates: start: 20100601, end: 20101102

REACTIONS (1)
  - BLOOD CREATINE INCREASED [None]
